FAERS Safety Report 6843546-9 (Version None)
Quarter: 2010Q3

REPORT INFORMATION
  Report Type: 
  Country: None (occurrence: None)
  Receive Date: 20100712
  Receipt Date: 20100624
  Transmission Date: 20110219
  Serious: Yes (Death)
  Sender: FDA-Public Use
  Company Number: CV20100319

PATIENT
  Age: 82 Year
  Sex: Male

DRUGS (6)
  1. FUROSEMIDE [Suspect]
     Indication: PRODUCT USED FOR UNKNOWN INDICATION
     Dosage: 80 MG, INTRAVENOUS
     Route: 042
     Dates: start: 20071020, end: 20071022
  2. VANCOMYCIN (VANCOMYCIN) (VANCOMYCIN) [Concomitant]
  3. GENTAMYCIN (GENTAMICIN) (GENTAMICIN) [Concomitant]
  4. ACTRAPID HUMAN (INSULIN HUMAN) (INSULIN HUMAN) [Concomitant]
  5. NEBILET (NEBIVOLOL HYDROCHLORIDE) (NEBIVOLOL HYDROCHLORIDE) [Concomitant]
  6. THEOPHYLLINE [Concomitant]

REACTIONS (1)
  - RENAL FAILURE ACUTE [None]
